FAERS Safety Report 5251187-2 (Version None)
Quarter: 2007Q1

REPORT INFORMATION
  Report Type: 
  Country: None (occurrence: None)
  Receive Date: 20070228
  Receipt Date: 20060912
  Transmission Date: 20070707
  Serious: No
  Sender: FDA-Public Use
  Company Number: US-GLAXOSMITHKLINE-A0619931A

PATIENT
  Sex: Male

DRUGS (6)
  1. LAMICTAL [Suspect]
     Indication: DRUG USE FOR UNKNOWN INDICATION
     Route: 048
  2. THORAZINE [Concomitant]
  3. KLONOPIN [Concomitant]
  4. TRILEPTAL [Concomitant]
  5. NASONEX [Concomitant]
  6. SINGULAIR [Concomitant]

REACTIONS (1)
  - DRUG SCREEN FALSE POSITIVE [None]
